FAERS Safety Report 5977308-1 (Version None)
Quarter: 2008Q4

REPORT INFORMATION
  Report Type: 
  Country: None (occurrence: None)
  Receive Date: 20081203
  Receipt Date: 20081119
  Transmission Date: 20090506
  Serious: Yes (Other)
  Sender: FDA-Public Use
  Company Number: PHHY2008FR29009

PATIENT
  Sex: Male

DRUGS (2)
  1. COTAREG [Suspect]
     Dosage: UNK
     Dates: start: 20080601
  2. PLAVIX [Concomitant]

REACTIONS (2)
  - APHTHOUS STOMATITIS [None]
  - VASCULITIS [None]
